FAERS Safety Report 12435428 (Version 2)
Quarter: 2017Q2

REPORT INFORMATION
  Report Type: Spontaneous
  Country: US (occurrence: US)
  Receive Date: 20160603
  Receipt Date: 20170607
  Transmission Date: 20170830
  Serious: Yes (Hospitalization)
  Sender: FDA-Public Use
  Company Number: US-ROCHE-1723687

PATIENT
  Sex: Male

DRUGS (2)
  1. XELODA [Suspect]
     Active Substance: CAPECITABINE
     Indication: COLON CANCER
     Dosage: 1500 MG AM AND 1000 MG PM
     Route: 048
  2. XELODA [Suspect]
     Active Substance: CAPECITABINE
     Dosage: PM
     Route: 048

REACTIONS (4)
  - Thirst [Not Recovered/Not Resolved]
  - Depression [Unknown]
  - Pelvic abscess [Recovering/Resolving]
  - Infection [Unknown]
